FAERS Safety Report 16391265 (Version 1)
Quarter: 2019Q2

REPORT INFORMATION
  Report Type: Spontaneous
  Country: US (occurrence: US)
  Receive Date: 20190604
  Receipt Date: 20190604
  Transmission Date: 20190711
  Serious: Yes (Hospitalization, Other)
  Sender: FDA-Public Use
  Company Number: PHHY2019US122861

PATIENT
  Age: 2 Year
  Sex: Male

DRUGS (3)
  1. MELPHALAN. [Suspect]
     Active Substance: MELPHALAN
     Indication: NEUROBLASTOMA
     Route: 065
  2. CARBOPLATIN. [Suspect]
     Active Substance: CARBOPLATIN
     Indication: NEUROBLASTOMA
     Route: 065
  3. ETOPOSIDE. [Suspect]
     Active Substance: ETOPOSIDE
     Indication: NEUROBLASTOMA
     Route: 065

REACTIONS (9)
  - Anaemia [Unknown]
  - Acute kidney injury [Unknown]
  - Thrombotic microangiopathy [Recovering/Resolving]
  - Product use in unapproved indication [Unknown]
  - Hypertension [Unknown]
  - Pleural effusion [Unknown]
  - Pericardial effusion [Unknown]
  - Thrombocytopenia [Unknown]
  - Multiple organ dysfunction syndrome [Unknown]
